FAERS Safety Report 7314365-4 (Version None)
Quarter: 2011Q1

REPORT INFORMATION
  Report Type: 
  Country: None (occurrence: None)
  Receive Date: 20110225
  Receipt Date: 20100729
  Transmission Date: 20110831
  Serious: No
  Sender: FDA-Public Use
  Company Number: US-MYLANLABS-2010S1014015

PATIENT
  Sex: Female

DRUGS (4)
  1. AMNESTEEM [Suspect]
     Indication: ACNE
     Route: 048
     Dates: start: 20100601
  2. SYNTHROID [Concomitant]
  3. ORTHO TRI-CYCLEN [Concomitant]
  4. CEPHALEXIN [Concomitant]

REACTIONS (1)
  - DYSPAREUNIA [None]
